FAERS Safety Report 9709175 (Version 6)
Quarter: 2014Q1

REPORT INFORMATION
  Report Type: Spontaneous
  Country: US (occurrence: US)
  Receive Date: 20131125
  Receipt Date: 20140127
  Transmission Date: 20141002
  Serious: Yes (Hospitalization, Other)
  Sender: FDA-Public Use
  Company Number: US-BAXTER-2013BAX045560

PATIENT
  Age: 71 Year
  Sex: Male

DRUGS (8)
  1. DIANEAL LOW CALCIUM [Suspect]
     Indication: PERITONEAL DIALYSIS
     Route: 033
     Dates: start: 20110826
  2. DIANEAL LOW CALCIUM [Suspect]
     Route: 033
     Dates: start: 20110826
  3. DIANEAL LOW CALCIUM [Suspect]
     Indication: PERITONEAL DIALYSIS
     Route: 033
     Dates: start: 20110826
  4. DIANEAL LOW CALCIUM [Suspect]
     Route: 033
     Dates: start: 20110826
  5. DIANEAL LOW CALCIUM [Suspect]
     Indication: PERITONEAL DIALYSIS
     Route: 033
     Dates: start: 20110826
  6. DIANEAL LOW CALCIUM [Suspect]
     Route: 033
     Dates: start: 20110826
  7. DIANEAL PD2 [Suspect]
     Indication: RENAL FAILURE CHRONIC
     Route: 033
  8. DIANEAL PD2 [Suspect]
     Route: 033

REACTIONS (6)
  - Myocardial infarction [Recovered/Resolved]
  - Pneumonia [Recovered/Resolved]
  - Peritonitis bacterial [Recovering/Resolving]
  - Local swelling [Recovering/Resolving]
  - Abdominal distension [Recovered/Resolved]
  - Abdominal pain [Recovered/Resolved]
